FAERS Safety Report 6257188-X (Version None)
Quarter: 2009Q3

REPORT INFORMATION
  Report Type: 
  Country: None (occurrence: None)
  Receive Date: 20090706
  Receipt Date: 20090622
  Transmission Date: 20100115
  Serious: Yes (Hospitalization)
  Sender: FDA-Public Use
  Company Number: DE-GENENTECH-285881

PATIENT
  Sex: Female

DRUGS (4)
  1. BEVACIZUMAB [Suspect]
     Indication: BREAST CANCER
     Dosage: 840 MG, UNK
     Route: 042
     Dates: start: 20090317
  2. DOCETAXEL [Suspect]
     Indication: BREAST CANCER
     Dosage: 160 MG, UNK
     Route: 042
     Dates: start: 20090612
  3. EPIRUBICIN [Suspect]
     Indication: BREAST CANCER
     Dosage: 144 MG, UNK
     Route: 042
     Dates: start: 20090317
  4. CYCLOPHOSPHAMIDE [Suspect]
     Indication: BREAST CANCER
     Dosage: 958 MG, UNK
     Route: 042
     Dates: start: 20090317

REACTIONS (1)
  - MUCOSAL INFLAMMATION [None]
